FAERS Safety Report 22653359 (Version 1)
Quarter: 2023Q2

REPORT INFORMATION
  Report Type: Report from Study
  Country: IT (occurrence: IT)
  Receive Date: 20230629
  Receipt Date: 20230629
  Transmission Date: 20230721
  Serious: Yes (Hospitalization, Other)
  Sender: FDA-Public Use
  Company Number: None

PATIENT
  Age: 95 Year
  Sex: Female
  Weight: 50 kg

DRUGS (7)
  1. METRONIDAZOLE [Suspect]
     Active Substance: METRONIDAZOLE
     Dosage: 1500 MILLIGRAM (MG,) DOSAGE TEXT - DOSE: 1500 UNIT OF MEASURE: MILLIGRAMS FREQUENCY OF ADMINISTRATIO
     Route: 042
     Dates: start: 20230523, end: 20230530
  2. PIPERACILLIN AND TAZOBACTAM [Suspect]
     Active Substance: PIPERACILLIN SODIUM\TAZOBACTAM SODIUM
     Indication: Pneumonitis
     Dosage: 13.5 MILLIGRAM (MG), DOSAGE TEXT: DOSE: 13.5 UNIT OF MEASURE: GRAMS FREQUENCY OF ADMINISTRATION: DAI
     Route: 042
     Dates: start: 20230523, end: 20230530
  3. METOCLOPRAMIDE HYDROCHLORIDE [Suspect]
     Active Substance: METOCLOPRAMIDE HYDROCHLORIDE
     Indication: Vomiting
     Dosage: 20 MILLIGRAM (MG), DOSAGE TEXT - DOSE: 20 UNIT OF MEASURE: MILLIGRAMS FREQUENCY OF ADMINISTRATION: D
     Route: 042
     Dates: start: 20230523, end: 20230530
  4. RANEXA [Concomitant]
     Active Substance: RANOLAZINE
     Dosage: 750 MILLIGRAM (MG), DOSAGE TEXT - DOSE: 750 UNIT OF MEASURE: MILLIGRAMS VIA ROUTE OF ADMINISTRATION:
     Route: 048
  5. PRAZEPAM [Concomitant]
     Active Substance: PRAZEPAM
     Indication: Insomnia
     Dosage: 2.5 MILLIGRAM (MG), DOSAGE TEXT: DOSE: 2.5 UNIT OF MEASURE: MILLIGRAMS VIA ROUTE OF ADMINISTRATION:
     Route: 048
     Dates: start: 20230523, end: 20230529
  6. ESCITALOPRAM OXALATE [Concomitant]
     Active Substance: ESCITALOPRAM OXALATE
     Dosage: 10 MILLIGRAM (MG), DOSAGE TEXT - DOSE: 10 UNIT OF MEASURE: MILLIGRAMS VIA ROUTE OF ADMINISTRATION: O
     Route: 048
     Dates: start: 20230523
  7. ASPIRIN [Concomitant]
     Active Substance: ASPIRIN
     Dosage: 100 MILLIGRAM (MG), DOSAGE TEXT - DOSE: 100 UNIT OF MEASURE: MILLIGRAMS
     Route: 048

REACTIONS (1)
  - Dermatitis exfoliative [Recovering/Resolving]

NARRATIVE: CASE EVENT DATE: 20230529
